FAERS Safety Report 5814897-1 (Version None)
Quarter: 2008Q3

REPORT INFORMATION
  Report Type: 
  Country: None (occurrence: None)
  Receive Date: 20080718
  Receipt Date: 20080708
  Transmission Date: 20090109
  Serious: Yes (Life-Threatening, Hospitalization)
  Sender: FDA-Public Use
  Company Number: US-JNJFOC-20080605844

PATIENT
  Age: 68 Year
  Sex: Female
  Weight: 45.36 kg

DRUGS (9)
  1. REMICADE [Suspect]
     Indication: RHEUMATOID ARTHRITIS
     Route: 042
  2. DIGOXIN [Suspect]
     Indication: DRUG USE FOR UNKNOWN INDICATION
  3. PYRIDOXINE [Suspect]
     Indication: DRUG USE FOR UNKNOWN INDICATION
  4. METOPROLOL TARTRATE [Concomitant]
  5. GLYBURIDE [Concomitant]
  6. PHENYTOIN [Concomitant]
  7. LEVETIRACETAM [Concomitant]
  8. FUROSEMIDE [Concomitant]
  9. ESOMEPRAZOLE MAGNESIUM [Concomitant]

REACTIONS (6)
  - APHASIA [None]
  - ASTHENIA [None]
  - CLUMSINESS [None]
  - NAUSEA [None]
  - TUBERCULOSIS [None]
  - VOMITING [None]
